FAERS Safety Report 9013264 (Version 3)
Quarter: 2013Q3

REPORT INFORMATION
  Report Type: Spontaneous
  Country: US (occurrence: US)
  Receive Date: 20130114
  Receipt Date: 20130723
  Transmission Date: 20140515
  Serious: Yes (Hospitalization, Other)
  Sender: FDA-Public Use
  Company Number: US-BAYER-2013-002323

PATIENT
  Age: 26 Year
  Sex: Female
  Weight: 68.03 kg

DRUGS (18)
  1. YAZ [Suspect]
     Dosage: UNK
     Route: 048
     Dates: start: 2003, end: 2008
  2. YASMIN [Suspect]
     Dosage: UNK
     Route: 048
     Dates: start: 2003, end: 2008
  3. OCELLA [Suspect]
     Dosage: UNK
     Route: 048
     Dates: start: 2003, end: 2008
  4. IBUPROFEN [Concomitant]
     Dosage: 200 MG, UNK
  5. LIDOCAINE W/EPINEPHRINE [Concomitant]
     Indication: LOCAL ANAESTHESIA
     Dosage: 1.8 CC [TIMES] 3
     Dates: start: 20081104
  6. DIFLUCAN [Concomitant]
     Dosage: UNK
     Dates: start: 20081109
  7. FLUCONAZOLE [Concomitant]
     Dosage: 150 MG, UNK
  8. MYCOLOG-II [Concomitant]
     Dosage: BID (INTERPRETED AS TWICE DAILY) [TIMES] 1 WEEK
     Route: 061
  9. NYSTATIN / TRIAMCINOLONE [Concomitant]
     Dosage: 30 GM BID FOR 1 WEEK
     Route: 061
  10. NYSTATIN / TRIAMCINOLONE [Concomitant]
     Dosage: 30 GM BID FOR 1 WEEK
     Route: 061
  11. MULTIVITAMIN [Concomitant]
     Dosage: 1 TABLET Q DAY
     Route: 048
  12. PROBIOTICS [Concomitant]
     Dosage: 1 TABLET Q DAY
     Route: 048
  13. ALEVE [Concomitant]
     Dosage: 500 MG, EVERY 6 HOURS AS NEEDED
     Route: 048
  14. ATIVAN [Concomitant]
     Dosage: UNK
  15. ZOFRAN [Concomitant]
     Dosage: UNK
  16. METOCLOPRAMIDE [Concomitant]
     Dosage: UNK
  17. XANAX [Concomitant]
     Indication: ANXIETY
     Dosage: 0.25 MG, EVERY 4 HOURS, PRN
  18. VITAMIN C [Concomitant]
     Indication: VITAMIN SUPPLEMENTATION

REACTIONS (9)
  - Pulmonary embolism [Recovered/Resolved]
  - Deep vein thrombosis [Recovered/Resolved]
  - Pain [Recovered/Resolved]
  - Pain [None]
  - Post thrombotic syndrome [None]
  - Anxiety [None]
  - Depression [None]
  - Mental disorder [None]
  - Pain [None]
